FAERS Safety Report 5366551-0 (Version None)
Quarter: 2007Q2

REPORT INFORMATION
  Report Type: 
  Country: None (occurrence: None)
  Receive Date: 20070622
  Receipt Date: 20070612
  Transmission Date: 20071010
  Serious: Yes (Other)
  Sender: FDA-Public Use
  Company Number: PT-PFIZER INC-2007046145

PATIENT
  Sex: Female
  Weight: 71 kg

DRUGS (2)
  1. CHAMPIX [Suspect]
     Indication: SMOKING CESSATION THERAPY
     Route: 048
     Dates: start: 20070412, end: 20070520
  2. TRIQUILAR [Interacting]
     Indication: CONTRACEPTION

REACTIONS (4)
  - DRUG INTERACTION [None]
  - MENSTRUAL DISORDER [None]
  - MENSTRUATION DELAYED [None]
  - WEIGHT INCREASED [None]
